FAERS Safety Report 16941367 (Version 2)
Quarter: 2019Q4

REPORT INFORMATION
  Report Type: Spontaneous
  Country: US (occurrence: US)
  Receive Date: 20191021
  Receipt Date: 20191219
  Transmission Date: 20200122
  Serious: No
  Sender: FDA-Public Use
  Company Number: US-BAYER-2019-189295

PATIENT
  Age: 73 Year
  Sex: Female
  Weight: 59 kg

DRUGS (2)
  1. MIRALAX [Suspect]
     Active Substance: POLYETHYLENE GLYCOL 3350
     Indication: GASTROINTESTINAL DISORDER
     Dosage: 3 DF, QD
     Route: 048
     Dates: start: 2018
  2. PRILOSEC [Concomitant]
     Active Substance: OMEPRAZOLE MAGNESIUM
     Dosage: UNK

REACTIONS (8)
  - Headache [Unknown]
  - Product odour abnormal [None]
  - Oral pain [Unknown]
  - Oral discomfort [Unknown]
  - Product taste abnormal [None]
  - Gingival pain [Not Recovered/Not Resolved]
  - Extra dose administered [None]
  - Incorrect product administration duration [Unknown]

NARRATIVE: CASE EVENT DATE: 201810
